FAERS Safety Report 7967262-5 (Version None)
Quarter: 2011Q4

REPORT INFORMATION
  Report Type: 
  Country: None (occurrence: None)
  Receive Date: 20111209
  Receipt Date: 20111130
  Transmission Date: 20120403
  Serious: Yes (Hospitalization)
  Sender: FDA-Public Use
  Company Number: JP-ASTRAZENECA-2011SE64322

PATIENT
  Age: 53 Year
  Sex: Male
  Weight: 62 kg

DRUGS (3)
  1. MONTELUKAST SODIUM [Concomitant]
     Indication: ASTHMA
     Route: 048
     Dates: end: 20110906
  2. OLOPATADINE HCL [Concomitant]
     Indication: RHINITIS ALLERGIC
     Route: 048
     Dates: end: 20110906
  3. SYMBICORT [Suspect]
     Indication: ASTHMA
     Dosage: 4 DF TWO TIMES A DAY
     Route: 055
     Dates: start: 20101019, end: 20110809

REACTIONS (1)
  - SUBARACHNOID HAEMORRHAGE [None]
